FAERS Safety Report 20064539 (Version 1)
Quarter: 2021Q4

REPORT INFORMATION
  Report Type: Spontaneous
  Country: US (occurrence: US)
  Receive Date: 20211112
  Receipt Date: 20211112
  Transmission Date: 20220303
  Serious: Yes (Other)
  Sender: FDA-Public Use
  Company Number: US-MALLINCKRODT-T202104961

PATIENT
  Age: 62 Year
  Sex: Female

DRUGS (1)
  1. H.P. ACTHAR [Suspect]
     Active Substance: CORTICOTROPIN
     Indication: Psoriatic arthropathy
     Dosage: 80 UNITS, TWICE WEEKLY
     Route: 058
     Dates: start: 201904

REACTIONS (2)
  - Spinal operation [Unknown]
  - Back disorder [Unknown]

NARRATIVE: CASE EVENT DATE: 20211001
